FAERS Safety Report 8082853-1 (Version None)
Quarter: 2012Q1

REPORT INFORMATION
  Report Type: 
  Country: None (occurrence: None)
  Receive Date: 20120127
  Receipt Date: 20110203
  Transmission Date: 20120608
  Serious: No
  Sender: FDA-Public Use
  Company Number: US-ABBOTT-11P-163-0700380-00

PATIENT
  Age: 47 Year
  Sex: Female

DRUGS (5)
  1. FOLIC ACID [Concomitant]
     Indication: PROSTATIC SPECIFIC ANTIGEN
  2. HUMIRA [Suspect]
     Indication: PSORIATIC ARTHROPATHY
     Dates: start: 20110121
  3. METHOTREXATE [Concomitant]
     Indication: PROSTATIC SPECIFIC ANTIGEN
     Dosage: 7 TABS ONCE A WEEK
  4. VIMOVO [Concomitant]
     Indication: INFLAMMATION
     Dosage: 500/20 MG
  5. DIOVAN HCT [Concomitant]
     Indication: HYPERTENSION
     Dosage: 160/125 MG 1 TAB DAILY

REACTIONS (1)
  - INJECTION SITE PAIN [None]
